FAERS Safety Report 5265854-8 (Version None)
Quarter: 2007Q1

REPORT INFORMATION
  Report Type: 
  Country: None (occurrence: None)
  Receive Date: 20070312
  Receipt Date: 20070312
  Transmission Date: 20070707
  Serious: Yes (Life-Threatening, Other)
  Sender: FDA-Public Use
  Company Number: None

PATIENT
  Age: 20 Year
  Sex: Male
  Weight: 77.1115 kg

DRUGS (7)
  1. MELLARIL [Suspect]
     Indication: BIPOLAR DISORDER
     Dosage: 2-3 TIMES A DAY   PO
     Route: 048
     Dates: start: 19850501, end: 20050501
  2. LITHIUM     1400 TO 900-AT FINISH IN 2004- [Suspect]
     Indication: BIPOLAR DISORDER
     Dates: start: 19850501, end: 20031202
  3. THORAZINE [Concomitant]
  4. STELLAZINE [Concomitant]
  5. HALDOL [Concomitant]
  6. GEODON [Concomitant]
  7. ABILIFY [Concomitant]

REACTIONS (1)
  - TARDIVE DYSKINESIA [None]
